FAERS Safety Report 17919394 (Version 1)
Quarter: 2020Q2

REPORT INFORMATION
  Report Type: Spontaneous
  Country: US (occurrence: US)
  Receive Date: 20200619
  Receipt Date: 20200619
  Transmission Date: 20200714
  Serious: Yes (Other)
  Sender: FDA-Public Use
  Company Number: US-CATALYST PHARMACEUTICALS, INC-2020CAT00136

PATIENT
  Age: 64 Year
  Sex: Female
  Weight: 105.22 kg

DRUGS (21)
  1. LORATADINE. [Concomitant]
     Active Substance: LORATADINE
     Dosage: 10 MG, 1X/DAY AT BEDTIME
  2. DANTROLENE. [Concomitant]
     Active Substance: DANTROLENE SODIUM
     Dosage: 25 MG, 1X/DAY MORNING
  3. TOPIRAMATE. [Concomitant]
     Active Substance: TOPIRAMATE
     Dosage: 100 MG, 1X/DAY
  4. TIZANIDINE. [Concomitant]
     Active Substance: TIZANIDINE
     Dosage: UNK, 1X/DAY NIGHT
  5. LEVOTHYROXINE. [Concomitant]
     Active Substance: LEVOTHYROXINE
     Dosage: 137 ?G, 1X/DAY
  6. FIRDAPSE [Suspect]
     Active Substance: AMIFAMPRIDINE
     Indication: MYASTHENIC SYNDROME
     Dosage: 20 MG, 4X/DAY
     Route: 048
     Dates: start: 2019
  7. ATENOLOL. [Concomitant]
     Active Substance: ATENOLOL
     Dosage: 100 MG, 1X/DAY MORNING
  8. DANTROLENE. [Concomitant]
     Active Substance: DANTROLENE SODIUM
     Dosage: 50 MG, 1X/DAY AT NIGHT
  9. PILOCARPINE. [Concomitant]
     Active Substance: PILOCARPINE
     Dosage: 5 MG, UP TO 3X/DAY AS NEEDED
  10. ALPRAZOLAM. [Concomitant]
     Active Substance: ALPRAZOLAM
     Dosage: UNK, 3X/DAY (HARDLY EVER TAKES)
  11. OXCARBAZEPINE. [Concomitant]
     Active Substance: OXCARBAZEPINE
     Dosage: 150 MG, 2X/DAY
  12. MONTELUKAST [Concomitant]
     Active Substance: MONTELUKAST SODIUM
     Dosage: 10 MG, 1X/DAY
  13. AMLODIPINE [Concomitant]
     Active Substance: AMLODIPINE BESYLATE
     Dosage: UNK, 1X/DAY
  14. DULOXETINE. [Concomitant]
     Active Substance: DULOXETINE
     Dosage: 40 MG, 2X/DAY
  15. ATORVASTATIN [Concomitant]
     Active Substance: ATORVASTATIN
     Dosage: 40 MG, 1X/DAY AT BEDTIME
  16. FIRDAPSE [Suspect]
     Active Substance: AMIFAMPRIDINE
     Indication: CHRONIC INFLAMMATORY DEMYELINATING POLYRADICULONEUROPATHY
  17. ATENOLOL. [Concomitant]
     Active Substance: ATENOLOL
     Dosage: 50 MG, 1X/DAY AT NIGHT
  18. TRAMADOL. [Concomitant]
     Active Substance: TRAMADOL
     Dosage: UNK, 1X/DAY AT BEDTIME
  19. LYRICA [Concomitant]
     Active Substance: PREGABALIN
     Dosage: 300 MG, 2X/DAY
  20. BENZTROPINE. [Concomitant]
     Active Substance: BENZTROPINE
     Dosage: UNK, EVERY 6 TO 8 HOURS AS NEEDED
  21. TRAZODONE [Concomitant]
     Active Substance: TRAZODONE HYDROCHLORIDE
     Dosage: 100 MG, 1X/DAY AT BEDTIME

REACTIONS (2)
  - Product use in unapproved indication [Not Recovered/Not Resolved]
  - Bronchitis [Recovering/Resolving]

NARRATIVE: CASE EVENT DATE: 202002
